FAERS Safety Report 6658092-5 (Version None)
Quarter: 2010Q1

REPORT INFORMATION
  Report Type: 
  Country: None (occurrence: None)
  Receive Date: 20100330
  Receipt Date: 20100319
  Transmission Date: 20100710
  Serious: Yes (Hospitalization)
  Sender: FDA-Public Use
  Company Number: US-SANOFI-AVENTIS-2010SA017014

PATIENT
  Age: 62 Year
  Sex: Male

DRUGS (6)
  1. LANTUS [Suspect]
     Indication: TYPE 2 DIABETES MELLITUS
     Dosage: DOSE:20 UNIT(S)
     Route: 058
     Dates: start: 20100318
  2. SOLOSTAR [Suspect]
     Indication: TYPE 2 DIABETES MELLITUS
     Dates: start: 20100318
  3. GLUCOPHAGE [Concomitant]
     Dosage: 2 TABLETS IN AM AND 2 TABLETS IN PM
  4. DIURETICS [Concomitant]
  5. NIASPAN [Concomitant]
  6. FENOFIBRATE [Concomitant]

REACTIONS (3)
  - BLOOD POTASSIUM INCREASED [None]
  - DEHYDRATION [None]
  - RENAL FUNCTION TEST ABNORMAL [None]
